FAERS Safety Report 7782507-2 (Version None)
Quarter: 2011Q3

REPORT INFORMATION
  Report Type: 
  Country: None (occurrence: None)
  Receive Date: 20110927
  Receipt Date: 20110927
  Transmission Date: 20111222
  Serious: Yes (Other)
  Sender: FDA-Public Use
  Company Number: None

PATIENT
  Sex: Female

DRUGS (1)
  1. CIMZIA [Suspect]
     Dosage: 200MG Q2W SQ
     Route: 058
     Dates: start: 20110117, end: 20110829

REACTIONS (1)
  - CHEST PAIN [None]
